FAERS Safety Report 8534320-6 (Version None)
Quarter: 2012Q2

REPORT INFORMATION
  Report Type: 
  Country: None (occurrence: None)
  Receive Date: 20120412
  Receipt Date: 20090821
  Transmission Date: 20120825
  Serious: Yes (Other)
  Sender: FDA-Public Use
  Company Number: PHEH2009US09741

PATIENT

DRUGS (1)
  1. CLOZAPINE [Suspect]

REACTIONS (1)
  - RHABDOMYOLYSIS [None]
